FAERS Safety Report 6927921-X (Version None)
Quarter: 2010Q3

REPORT INFORMATION
  Report Type: 
  Country: None (occurrence: None)
  Receive Date: 20100817
  Receipt Date: 20100805
  Transmission Date: 20110219
  Serious: Yes (Death, Hospitalization, Disabling, Other)
  Sender: FDA-Public Use
  Company Number: FR-PFIZER INC-2010041666

PATIENT
  Age: 70 Year
  Sex: Male

DRUGS (2)
  1. SUTENT [Suspect]
     Indication: GASTROINTESTINAL STROMAL TUMOUR
     Dosage: 50 MG, 1X/DAY
     Dates: start: 20090808, end: 20091014
  2. PARACETAMOL [Concomitant]

REACTIONS (5)
  - ARTERIAL DISORDER [None]
  - DISEASE PROGRESSION [None]
  - EXTREMITY NECROSIS [None]
  - GASTROINTESTINAL STROMAL TUMOUR [None]
  - SKIN ULCER [None]
